FAERS Safety Report 12088842 (Version 1)
Quarter: 2016Q1

REPORT INFORMATION
  Report Type: Spontaneous
  Country: US (occurrence: US)
  Receive Date: 20160218
  Receipt Date: 20160218
  Transmission Date: 20160526
  Serious: Yes (Other)
  Sender: FDA-Public Use
  Company Number: US-BANPHARM-20164645

PATIENT
  Age: 54 Year
  Sex: Female
  Weight: 2.44 kg

DRUGS (3)
  1. ALEVE [Suspect]
     Active Substance: NAPROXEN SODIUM
     Indication: FRACTURE PAIN
     Dosage: 1 DF, QD,
     Route: 048
  2. MAGNESIUM [Concomitant]
     Active Substance: MAGNESIUM
  3. NEWFREE [Concomitant]

REACTIONS (3)
  - Incorrect drug administration duration [Unknown]
  - Product size issue [Unknown]
  - Choking [Unknown]
